FAERS Safety Report 6377744-8 (Version None)
Quarter: 2009Q3

REPORT INFORMATION
  Report Type: 
  Country: None (occurrence: None)
  Receive Date: 20090925
  Receipt Date: 20090911
  Transmission Date: 20100115
  Serious: Yes (Other)
  Sender: FDA-Public Use
  Company Number: CHPA2009US18550

PATIENT
  Age: 88 Year
  Sex: Female
  Weight: 60.317 kg

DRUGS (2)
  1. EX-LAX REG STR LAX PILLS SENNA (NCH) [Suspect]
     Indication: CONSTIPATION
     Dosage: UNK
     Route: 048
  2. EX-LAX REG STR LAX PILLS SENNA (NCH) [Suspect]
     Dosage: 15 MG, BID
     Route: 048
     Dates: start: 20090801

REACTIONS (3)
  - BLOOD GLUCOSE INCREASED [None]
  - INTENTIONAL DRUG MISUSE [None]
  - TYPE 2 DIABETES MELLITUS [None]
